FAERS Safety Report 5692564-5 (Version None)
Quarter: 2008Q2

REPORT INFORMATION
  Report Type: 
  Country: None (occurrence: None)
  Receive Date: 20080328
  Receipt Date: 20071130
  Transmission Date: 20081010
  Serious: No
  Sender: FDA-Public Use
  Company Number: US-WYE-H01535107

PATIENT
  Age: 68 Year
  Sex: Male
  Weight: 90.35 kg

DRUGS (6)
  1. TORISEL [Suspect]
     Indication: RENAL CELL CARCINOMA
     Dosage: 25 MG 1X PER 1WK, INTRAVENOUS
     Route: 042
     Dates: start: 20070101, end: 20071219
  2. OXYCONTIN [Concomitant]
  3. DETROL [Concomitant]
  4. FENTANYL [Concomitant]
  5. HYTRIN [Concomitant]
  6. LORAZEPAM [Concomitant]

REACTIONS (1)
  - VEIN DISORDER [None]
